FAERS Safety Report 21673604 (Version 1)
Quarter: 2022Q4

REPORT INFORMATION
  Report Type: Spontaneous
  Country: FR (occurrence: FR)
  Receive Date: 20221202
  Receipt Date: 20221202
  Transmission Date: 20230112
  Serious: Yes (Hospitalization)
  Sender: FDA-Public Use
  Company Number: None

PATIENT
  Age: 70 Year
  Sex: Female

DRUGS (1)
  1. ESBRIET [Suspect]
     Active Substance: PIRFENIDONE
     Indication: Idiopathic pulmonary fibrosis
     Dosage: 3 FOIS / JOUR
     Route: 048
     Dates: start: 20150401, end: 20221002

REACTIONS (1)
  - Microscopic polyangiitis [Not Recovered/Not Resolved]

NARRATIVE: CASE EVENT DATE: 20221002
